FAERS Safety Report 13494961 (Version 1)
Quarter: 2017Q2

REPORT INFORMATION
  Report Type: Spontaneous
  Country: US (occurrence: US)
  Receive Date: 20170428
  Receipt Date: 20170428
  Transmission Date: 20170830
  Serious: No
  Sender: FDA-Public Use
  Company Number: US-ASTRAZENECA-2017SE40981

PATIENT
  Age: 54 Year
  Sex: Female

DRUGS (4)
  1. PROCHLORPERAZINE MALEATE. [Suspect]
     Active Substance: PROCHLORPERAZINE MALEATE
     Indication: NAUSEA
     Route: 065
     Dates: start: 20170320
  2. CEFDINIR. [Suspect]
     Active Substance: CEFDINIR
     Indication: DRUG THERAPY
     Route: 065
     Dates: start: 201611
  3. NEXIUM [Suspect]
     Active Substance: ESOMEPRAZOLE MAGNESIUM
     Route: 048
     Dates: start: 20170320
  4. CEFDINIR. [Suspect]
     Active Substance: CEFDINIR
     Indication: DRUG THERAPY
     Route: 065
     Dates: start: 201703

REACTIONS (2)
  - Gastrointestinal inflammation [Unknown]
  - Gastrointestinal disorder [Unknown]
